FAERS Safety Report 12845134 (Version 2)
Quarter: 2016Q4

REPORT INFORMATION
  Report Type: Report from Study
  Country: US (occurrence: US)
  Receive Date: 20161013
  Receipt Date: 20161107
  Transmission Date: 20170207
  Serious: Yes (Other)
  Sender: FDA-Public Use
  Company Number: US-UCBSA-2016038083

PATIENT

DRUGS (7)
  1. ZOLOFT [Concomitant]
     Active Substance: SERTRALINE HYDROCHLORIDE
     Indication: PRODUCT USED FOR UNKNOWN INDICATION
  2. LEVETIRACETAM. [Suspect]
     Active Substance: LEVETIRACETAM
     Indication: SEIZURE
     Dosage: UNK
  3. LEVETIRACETAM. [Suspect]
     Active Substance: LEVETIRACETAM
     Dosage: HIGHER DOSE
  4. PREDNISONE. [Suspect]
     Active Substance: PREDNISONE
     Indication: PRODUCT USED FOR UNKNOWN INDICATION
     Dosage: UNK
  5. ALIMTA [Suspect]
     Active Substance: PEMETREXED DISODIUM
     Indication: PRODUCT USED FOR UNKNOWN INDICATION
     Dosage: UNK
  6. SYNTHROID [Concomitant]
     Active Substance: LEVOTHYROXINE SODIUM
     Indication: PRODUCT USED FOR UNKNOWN INDICATION
     Dosage: UNK
  7. ADVIL [Concomitant]
     Active Substance: IBUPROFEN
     Indication: PRODUCT USED FOR UNKNOWN INDICATION
     Dosage: UNK

REACTIONS (31)
  - Anxiety [Unknown]
  - Decreased appetite [Unknown]
  - Back pain [Unknown]
  - Feeling abnormal [Unknown]
  - Headache [Unknown]
  - Irritability [Unknown]
  - Vomiting [Unknown]
  - Amnesia [Unknown]
  - Asthenia [Unknown]
  - Aggression [Unknown]
  - Constipation [Unknown]
  - Heart rate increased [Unknown]
  - Anaemia [Unknown]
  - Nervousness [Unknown]
  - Agitation [Unknown]
  - Mood altered [Unknown]
  - Thinking abnormal [Unknown]
  - Gait disturbance [Unknown]
  - White blood cell count decreased [Unknown]
  - Anger [Unknown]
  - Brain injury [Not Recovered/Not Resolved]
  - Depression [Unknown]
  - Fatigue [Unknown]
  - Seizure [Unknown]
  - Neurosis [Unknown]
  - Somnolence [Unknown]
  - Abnormal behaviour [Unknown]
  - Vision blurred [Unknown]
  - Dizziness [Unknown]
  - Hostility [Unknown]
  - Speech disorder [Unknown]
